FAERS Safety Report 5255829-7 (Version None)
Quarter: 2007Q1

REPORT INFORMATION
  Report Type: 
  Country: None (occurrence: None)
  Receive Date: 20070301
  Receipt Date: 20070220
  Transmission Date: 20070707
  Serious: Yes (Life-Threatening, Hospitalization, Other)
  Sender: FDA-Public Use
  Company Number: 225648

PATIENT
  Age: 48 Year
  Sex: Male

DRUGS (5)
  1. RAPTIVA [Suspect]
     Indication: PSORIASIS
     Dosage: 0.9 ML, 1/WEEK, SUBCUTANEOUS
     Route: 058
  2. ASPIRIN [Suspect]
     Indication: EMBOLISM
     Dosage: ORAL
     Route: 048
  3. AMLODIPINE BESYLATE [Suspect]
     Indication: MYOCARDIAL INFARCTION
     Dosage: 10 MG, ORAL
     Route: 048
  4. PRAVASTATIN [Suspect]
     Indication: HYPERCHOLESTEROLAEMIA
     Dosage: 20 MG, ORAL
     Route: 048
  5. ... [Concomitant]

REACTIONS (12)
  - ARTERIAL THROMBOSIS [None]
  - DRUG HYPERSENSITIVITY [None]
  - EMBOLISM [None]
  - HEADACHE [None]
  - HYPERCHOLESTEROLAEMIA [None]
  - INFLUENZA LIKE ILLNESS [None]
  - MUSCLE HAEMORRHAGE [None]
  - MUSCLE RUPTURE [None]
  - MYOCARDIAL INFARCTION [None]
  - NASOPHARYNGITIS [None]
  - PULMONARY EMBOLISM [None]
  - SUBCUTANEOUS HAEMATOMA [None]
